FAERS Safety Report 15343244 (Version 2)
Quarter: 2018Q3

REPORT INFORMATION
  Report Type: Spontaneous
  Country: US (occurrence: US)
  Receive Date: 20180903
  Receipt Date: 20180921
  Transmission Date: 20181010
  Serious: No
  Sender: FDA-Public Use
  Company Number: US-BAUSCH-BL-2018-023423

PATIENT
  Age: 55 Year
  Sex: Female
  Weight: 55.39 kg

DRUGS (4)
  1. IPRATROPIUM BROMIDE NASAL SOLUTION 0.06% [Suspect]
     Active Substance: IPRATROPIUM BROMIDE
     Indication: RHINORRHOEA
     Dosage: FOR THE PAST 1.5 YEARS
     Route: 045
     Dates: start: 2017
  2. IPRATROPIUM BROMIDE NASAL SOLUTION 0.06% [Suspect]
     Active Substance: IPRATROPIUM BROMIDE
     Route: 045
     Dates: start: 2018
  3. IPRATROPIUM BROMIDE NASAL SOLUTION 0.06% [Suspect]
     Active Substance: IPRATROPIUM BROMIDE
     Dosage: TWO SPRAYS IN EACH NOSTRIL
     Route: 045
     Dates: start: 20180816, end: 201808
  4. IPRATROPIUM BROMIDE NASAL SOLUTION 0.06% [Suspect]
     Active Substance: IPRATROPIUM BROMIDE
     Dosage: 4 TO 5 TIMES A DAY
     Route: 045
     Dates: start: 201808, end: 2018

REACTIONS (4)
  - Intentional product use issue [Not Recovered/Not Resolved]
  - Product quality issue [Not Recovered/Not Resolved]
  - Drug ineffective [Recovered/Resolved]
  - Nasal discomfort [Recovered/Resolved]

NARRATIVE: CASE EVENT DATE: 201808
